FAERS Safety Report 8787566 (Version 2)
Quarter: 2015Q1

REPORT INFORMATION
  Report Type: Report from Study
  Country: US (occurrence: US)
  Receive Date: 20120914
  Receipt Date: 20150330
  Transmission Date: 20150721
  Serious: Yes (Death, Hospitalization)
  Sender: FDA-Public Use
  Company Number: US-ROCHE-1126176

PATIENT
  Age: 75 Year
  Sex: Male
  Weight: 156 kg

DRUGS (29)
  1. AVASTIN [Suspect]
     Active Substance: BEVACIZUMAB
     Route: 042
  2. DECADRON [Concomitant]
     Active Substance: DEXAMETHASONE
     Route: 042
  3. TAXOTERE [Concomitant]
     Active Substance: DOCETAXEL
     Route: 042
  4. HEPARIN [Concomitant]
     Active Substance: HEPARIN SODIUM
  5. PROTONIX (UNITED STATES) [Concomitant]
     Route: 065
  6. SPIRIVA [Concomitant]
     Active Substance: TIOTROPIUM BROMIDE MONOHYDRATE
     Dosage: ONE PUFF DAILY
     Route: 065
  7. DEXAMETHASONE. [Concomitant]
     Active Substance: DEXAMETHASONE
     Route: 065
  8. DECADRON [Concomitant]
     Active Substance: DEXAMETHASONE
     Route: 048
  9. AREDIA [Concomitant]
     Active Substance: PAMIDRONATE DISODIUM
     Route: 042
  10. WARFARIN [Concomitant]
     Active Substance: WARFARIN
     Route: 065
  11. LIPITOR [Concomitant]
     Active Substance: ATORVASTATIN CALCIUM
     Route: 065
  12. AVASTIN [Suspect]
     Active Substance: BEVACIZUMAB
     Indication: LUNG NEOPLASM MALIGNANT
     Route: 042
     Dates: start: 20051116
  13. CARBOPLATIN. [Concomitant]
     Active Substance: CARBOPLATIN
     Route: 042
  14. ALOXI [Concomitant]
     Active Substance: PALONOSETRON HYDROCHLORIDE
     Route: 042
  15. TAXOL [Concomitant]
     Active Substance: PACLITAXEL
     Route: 042
  16. LASIX [Concomitant]
     Active Substance: FUROSEMIDE
     Dosage: 2 TABLETS
     Route: 065
  17. METHADONE [Concomitant]
     Active Substance: METHADONE HYDROCHLORIDE
  18. MICRO-K [Concomitant]
     Active Substance: POTASSIUM CHLORIDE
     Dosage: 4 TABLETS
     Route: 048
  19. FAMVIR [Concomitant]
     Active Substance: FAMCICLOVIR
     Route: 065
  20. ZAROXOLYN [Concomitant]
     Active Substance: METOLAZONE
     Route: 065
  21. BENADRYL [Concomitant]
     Active Substance: DIPHENHYDRAMINE HYDROCHLORIDE
     Route: 065
  22. COLACE [Concomitant]
     Active Substance: DOCUSATE SODIUM
     Route: 065
  23. AVASTIN [Suspect]
     Active Substance: BEVACIZUMAB
     Route: 042
  24. ARANESP [Concomitant]
     Active Substance: DARBEPOETIN ALFA
     Route: 065
  25. COUMADIN [Concomitant]
     Active Substance: WARFARIN SODIUM
  26. ADVAIR DISKUS [Concomitant]
     Active Substance: FLUTICASONE PROPIONATE\SALMETEROL XINAFOATE
     Dosage: 500/50 MG, ONE PUFF DAILY
     Route: 065
  27. PRINIVIL [Concomitant]
     Active Substance: LISINOPRIL
     Route: 065
  28. PERCOCET [Concomitant]
     Active Substance: ACETAMINOPHEN\OXYCODONE HYDROCHLORIDE
     Dosage: 5/325 MG, PRN
     Route: 065
  29. PREVACID [Concomitant]
     Active Substance: LANSOPRAZOLE

REACTIONS (28)
  - Fatigue [Unknown]
  - Paraesthesia [Unknown]
  - Bursitis [Unknown]
  - Haematuria [Recovered/Resolved]
  - Injury [Recovered/Resolved]
  - Death [Fatal]
  - Constipation [Unknown]
  - Abdominal pain lower [Unknown]
  - Bone neoplasm [Unknown]
  - Urinary tract infection [Recovered/Resolved]
  - Deep vein thrombosis [Unknown]
  - Rash [Recovering/Resolving]
  - Nausea [Unknown]
  - Cardiac failure congestive [Unknown]
  - Hyperglycaemia [Recovered/Resolved]
  - Herpes zoster [Unknown]
  - Chronic obstructive pulmonary disease [Unknown]
  - Rash erythematous [Recovering/Resolving]
  - Diarrhoea [Unknown]
  - Metabolic acidosis [Recovered/Resolved]
  - Cardiomyopathy [Recovered/Resolved]
  - Rash pruritic [Recovering/Resolving]
  - Peroneal nerve palsy [Unknown]
  - Liver function test abnormal [Unknown]
  - Off label use [Unknown]
  - Asthenia [Unknown]
  - Thrombocytopenia [Recovered/Resolved]
  - Infection [Unknown]

NARRATIVE: CASE EVENT DATE: 20051227
